FAERS Safety Report 9400178 (Version 1)
Quarter: 2013Q3

REPORT INFORMATION
  Report Type: Spontaneous
  Country: GB (occurrence: GB)
  Receive Date: 20130715
  Receipt Date: 20130715
  Transmission Date: 20140515
  Serious: Yes (Life-Threatening, Hospitalization, Other)
  Sender: FDA-Public Use
  Company Number: GB-ASTRAZENECA-2013SE52121

PATIENT
  Age: 28 Year
  Sex: Female
  Weight: 42.7 kg

DRUGS (7)
  1. QUETIAPINE [Suspect]
     Indication: NIGHTMARE
     Route: 048
     Dates: start: 20130612, end: 20130703
  2. CALCEOS [Concomitant]
  3. FERROUS SULPHATE [Concomitant]
  4. MIRTAZAPINE [Concomitant]
  5. OMEPRAZOLE [Concomitant]
  6. PENICILLIN V [Concomitant]
  7. SANDO-K [Concomitant]

REACTIONS (6)
  - Blood electrolytes abnormal [Recovered/Resolved]
  - Blood potassium decreased [Recovered/Resolved]
  - Electrocardiogram QT prolonged [Recovered/Resolved]
  - Electrocardiogram T wave inversion [Recovered/Resolved]
  - Loss of consciousness [Recovered/Resolved]
  - Dizziness [Unknown]
